FAERS Safety Report 11698410 (Version 1)
Quarter: 2015Q4

REPORT INFORMATION
  Report Type: Spontaneous
  Country: DK (occurrence: CH)
  Receive Date: 20151104
  Receipt Date: 20151104
  Transmission Date: 20160304
  Serious: Yes (Death)
  Sender: FDA-Public Use
  Company Number: CH-FRI-1000080610

PATIENT
  Age: 89 Year
  Sex: Female
  Weight: 49 kg

DRUGS (18)
  1. ESCITALOPRAM [Suspect]
     Active Substance: ESCITALOPRAM OXALATE
     Indication: PRODUCT USED FOR UNKNOWN INDICATION
     Dosage: 5 MG
     Route: 048
     Dates: start: 20150520, end: 20150528
  2. COVERSUM [Concomitant]
     Active Substance: PERINDOPRIL
     Route: 048
     Dates: start: 20150521, end: 20150528
  3. MORPHIN [Concomitant]
     Active Substance: MORPHINE
     Indication: PRODUCT USED FOR UNKNOWN INDICATION
     Route: 048
     Dates: start: 20150527, end: 20150527
  4. TEMESTA [Concomitant]
     Active Substance: LORAZEPAM
     Route: 048
     Dates: start: 20150516, end: 20150521
  5. TEMESTA [Concomitant]
     Active Substance: LORAZEPAM
     Route: 048
     Dates: start: 20150527
  6. RINGER LACTAT [Concomitant]
     Indication: PRODUCT USED FOR UNKNOWN INDICATION
     Dosage: 1000 ML
     Route: 042
     Dates: start: 20150526, end: 20150527
  7. ASPIRIN CARDIO [Concomitant]
     Active Substance: ASPIRIN
     Indication: PRODUCT USED FOR UNKNOWN INDICATION
     Dosage: 100 MG
     Route: 048
     Dates: start: 20110908
  8. ATORVASTATIN [Concomitant]
     Active Substance: ATORVASTATIN
     Indication: PRODUCT USED FOR UNKNOWN INDICATION
     Dosage: 10 MG
     Route: 048
     Dates: start: 20150513, end: 20150523
  9. RISPERDAL [Suspect]
     Active Substance: RISPERIDONE
     Dosage: 1 MG
     Route: 048
     Dates: start: 20150505, end: 20150507
  10. EUTHYROX [Concomitant]
     Active Substance: LEVOTHYROXINE SODIUM
     Indication: PRODUCT USED FOR UNKNOWN INDICATION
     Route: 048
     Dates: start: 20150513, end: 20150527
  11. TEMESTA [Concomitant]
     Active Substance: LORAZEPAM
     Indication: PRODUCT USED FOR UNKNOWN INDICATION
     Route: 048
     Dates: start: 20150513, end: 20150515
  12. NOVALGIN [Concomitant]
     Active Substance: METAMIZOLE SODIUM
     Indication: PRODUCT USED FOR UNKNOWN INDICATION
     Dosage: .5 MG
     Route: 048
     Dates: start: 20150520, end: 20150521
  13. COVERSUM [Concomitant]
     Active Substance: PERINDOPRIL
     Indication: PRODUCT USED FOR UNKNOWN INDICATION
     Route: 048
     Dates: start: 20110908, end: 20150520
  14. EXELON [Concomitant]
     Active Substance: RIVASTIGMINE TARTRATE
     Indication: PRODUCT USED FOR UNKNOWN INDICATION
     Dosage: 4.6 MG
     Route: 062
     Dates: start: 20150512, end: 20150527
  15. SEROQUEL [Suspect]
     Active Substance: QUETIAPINE FUMARATE
     Indication: PRODUCT USED FOR UNKNOWN INDICATION
     Route: 050
  16. RISPERDAL [Suspect]
     Active Substance: RISPERIDONE
     Indication: PRODUCT USED FOR UNKNOWN INDICATION
     Route: 048
  17. RISPERDAL [Suspect]
     Active Substance: RISPERIDONE
     Dosage: 5 MG
     Route: 048
     Dates: start: 20150508, end: 20150528
  18. ADALAT [Concomitant]
     Active Substance: NIFEDIPINE
     Indication: PRODUCT USED FOR UNKNOWN INDICATION
     Dosage: 20 MG
     Route: 048
     Dates: start: 20150519

REACTIONS (2)
  - General physical health deterioration [Fatal]
  - Cardiac failure [Fatal]

NARRATIVE: CASE EVENT DATE: 20150526
